FAERS Safety Report 9325144 (Version 1)
Quarter: 2013Q2

REPORT INFORMATION
  Report Type: Spontaneous
  Country: US (occurrence: US)
  Receive Date: 20130603
  Receipt Date: 20130603
  Transmission Date: 20140414
  Serious: Yes (Hospitalization)
  Sender: FDA-Public Use
  Company Number: US-B.I. PHARMACEUTICALS,INC./RIDGEFIELD-2013-BI-15187BP

PATIENT
  Age: 83 Year
  Sex: Female
  Weight: 76 kg

DRUGS (4)
  1. DULCOLAX TABLETS [Suspect]
     Indication: CONSTIPATION
     Dosage: 5 MG
     Route: 048
     Dates: start: 2012
  2. DULCOLAX (BISACODYL) [Suspect]
     Indication: CONSTIPATION
     Dosage: 10 MG
     Route: 054
     Dates: start: 20130430, end: 20130502
  3. VICODIN [Concomitant]
     Indication: BACK PAIN
     Dosage: STRENGTH: 5MG/500MG; DAILY DOSE: 5MG/500MG
     Route: 048
  4. MIRALAX [Concomitant]
     Indication: CONSTIPATION
     Dosage: 34 G
     Route: 048
     Dates: start: 20130426

REACTIONS (8)
  - Product quality issue [Unknown]
  - Fall [Recovered/Resolved]
  - Spinal compression fracture [Not Recovered/Not Resolved]
  - Intervertebral disc protrusion [Not Recovered/Not Resolved]
  - Back pain [Not Recovered/Not Resolved]
  - Faecaloma [Recovered/Resolved]
  - Constipation [Recovered/Resolved]
  - Drug ineffective [Recovered/Resolved]
